FAERS Safety Report 13920859 (Version 3)
Quarter: 2017Q4

REPORT INFORMATION
  Report Type: Spontaneous
  Country: US (occurrence: US)
  Receive Date: 20170830
  Receipt Date: 20171012
  Transmission Date: 20180320
  Serious: Yes (Hospitalization)
  Sender: FDA-Public Use
  Company Number: US-VERTEX PHARMACEUTICALS-2017-004668

PATIENT
  Age: 12 Year
  Sex: Female

DRUGS (17)
  1. CETIRIZINE [Concomitant]
     Active Substance: CETIRIZINE HYDROCHLORIDE
     Dosage: 5 ML, QD
     Route: 048
     Dates: start: 20161119
  2. ORKAMBI [Suspect]
     Active Substance: IVACAFTOR\LUMACAFTOR
     Indication: CYSTIC FIBROSIS
     Dosage: 2 TABS (200-125MG EACH), BID
     Route: 048
     Dates: start: 20170105
  3. LACTOBACILLUS RHAMNOSUS [Concomitant]
     Active Substance: LACTOBACILLUS RHAMNOSUS
     Indication: ABDOMINAL DISCOMFORT
     Dosage: 1 PACKET, QD
     Route: 048
     Dates: start: 20161223
  4. SODIUM CHLORIDE. [Concomitant]
     Active Substance: SODIUM CHLORIDE
     Dosage: 1 VIAL, BID (MAY INCREASE UPTO 4 TIMES DAILY)
     Route: 055
     Dates: start: 20160328
  5. FLUTICASONE. [Concomitant]
     Active Substance: FLUTICASONE
     Dosage: 1 SPRAY EACH NOSTRIL, BID
     Route: 045
  6. CYPROHEPTADINE. [Concomitant]
     Active Substance: CYPROHEPTADINE
     Dosage: 2 MG, TID
     Route: 048
     Dates: start: 20170828
  7. CREON [Concomitant]
     Active Substance: PANCRELIPASE AMYLASE\PANCRELIPASE LIPASE\PANCRELIPASE PROTEASE
     Dosage: 3 CAPS BEFORE MEALS, 2 CAPS BEFORE SNACKS + SHAKE
     Dates: start: 20170428
  8. CHOLECALCIFEROL [Concomitant]
     Active Substance: CHOLECALCIFEROL
     Dosage: 1 DF, QD
     Route: 048
     Dates: start: 20160328
  9. IPRATROPIUM [Concomitant]
     Active Substance: IPRATROPIUM
     Dosage: 2 SPRAYS IN BOTH NOSTRILS, BID
     Route: 045
     Dates: start: 20170321
  10. DOCUSATE [Concomitant]
     Active Substance: DOCUSATE
     Dosage: 100 MG, QD
     Route: 048
     Dates: start: 20170303
  11. FLOVENT HFA [Concomitant]
     Active Substance: FLUTICASONE PROPIONATE
     Dosage: 2 PUFFS, BID
     Route: 055
     Dates: start: 20160328
  12. SCANDISHAKE MIX [Concomitant]
     Active Substance: DIETARY SUPPLEMENT
     Dosage: 1 PACKET, QD
     Route: 048
  13. MEPHYTON [Concomitant]
     Active Substance: PHYTONADIONE
     Dosage: 5 MG, 2 TIMES A WEEK (WED + THURS.)
     Route: 048
     Dates: start: 20170613
  14. LANSOPRAZOLE. [Concomitant]
     Active Substance: LANSOPRAZOLE
     Dosage: 15 MG, QD
     Route: 048
  15. MIRALAX [Concomitant]
     Active Substance: POLYETHYLENE GLYCOL 3350
     Indication: CONSTIPATION
     Dosage: 1 CAP, TID FOR 3 DAYS, 2 CAPS, BID FOR 2 DAYS, 1 CAP, QD FOR 1 DAY
     Dates: start: 20161119
  16. COMPLETE MULTI VIT [Concomitant]
     Dosage: 1 DF, QD
     Route: 048
     Dates: start: 20160328
  17. VENTOLIN HFA [Concomitant]
     Active Substance: ALBUTEROL SULFATE
     Dosage: 2 PUFFS, BID (MAY INCREASE TO 4 TIMES DAILY FOR COUGH)
     Route: 055
     Dates: start: 20160328

REACTIONS (1)
  - Infective pulmonary exacerbation of cystic fibrosis [Recovered/Resolved]

NARRATIVE: CASE EVENT DATE: 20170801
